FAERS Safety Report 8855850 (Version 1)
Quarter: 2012Q4

REPORT INFORMATION
  Report Type: Spontaneous
  Country: US (occurrence: None)
  Receive Date: 20121022
  Receipt Date: 20121022
  Transmission Date: 20130627
  Serious: Yes (Life-Threatening, Hospitalization)
  Sender: FDA-Public Use
  Company Number: None

PATIENT
  Age: 81 Year
  Sex: Female
  Weight: 48 kg

DRUGS (6)
  1. CYMBALTA 30 MG LILLY [Suspect]
     Dosage: 30mg twice daily po
     Route: 048
  2. ASPIRIN [Concomitant]
  3. ATENOLOL [Concomitant]
  4. BENADRYL [Concomitant]
  5. PRILOSEC [Concomitant]
  6. TYLENOL [Concomitant]

REACTIONS (4)
  - Hyponatraemia [None]
  - Unresponsive to stimuli [None]
  - Fall [None]
  - Electrocardiogram ST segment elevation [None]
